FAERS Safety Report 18546450 (Version 1)
Quarter: 2020Q4

REPORT INFORMATION
  Report Type: Report from Study
  Country: BD (occurrence: BD)
  Receive Date: 20201125
  Receipt Date: 20201125
  Transmission Date: 20210114
  Serious: Yes (Death, Hospitalization)
  Sender: FDA-Public Use
  Company Number: BD-INCYTE CORPORATION-2020IN011378

PATIENT

DRUGS (1)
  1. JAKAVI [Suspect]
     Active Substance: RUXOLITINIB
     Indication: PNEUMONIA
     Dosage: 10 MG, BID (2 TABLETS OF 5 MG IN THE MORNING AND EVENING)
     Route: 048
     Dates: start: 20201014

REACTIONS (6)
  - Product use in unapproved indication [Unknown]
  - Feeding disorder [Unknown]
  - Pneumonia [Fatal]
  - Dyspnoea [Fatal]
  - Asthma [Fatal]
  - Pyrexia [Fatal]

NARRATIVE: CASE EVENT DATE: 20201014
